FAERS Safety Report 8130999-1 (Version None)
Quarter: 2012Q1

REPORT INFORMATION
  Report Type: 
  Country: None (occurrence: None)
  Receive Date: 20120208
  Receipt Date: 20120208
  Transmission Date: 20120608
  Serious: No
  Sender: FDA-Public Use
  Company Number: None

PATIENT
  Age: 78 Year
  Sex: Male
  Weight: 140.4 kg

DRUGS (1)
  1. IOHEXOL [Suspect]
     Indication: SURGERY
     Dosage: 300 MG ONCE
     Dates: start: 20120201, end: 20120201

REACTIONS (4)
  - THROAT TIGHTNESS [None]
  - URTICARIA [None]
  - DIZZINESS [None]
  - RASH [None]
